FAERS Safety Report 5613632-X (Version None)
Quarter: 2008Q1

REPORT INFORMATION
  Report Type: 
  Country: None (occurrence: None)
  Receive Date: 20080129
  Receipt Date: 20080116
  Transmission Date: 20080703
  Serious: Yes (Life-Threatening, Hospitalization, Other)
  Sender: FDA-Public Use
  Company Number: 44469

PATIENT
  Age: 23 Year
  Sex: Male

DRUGS (3)
  1. CISPLATIN [Suspect]
     Indication: BONE SARCOMA
     Dosage: 100MG/M2X2; INTRAATERIALLY
     Route: 013
  2. ADRIAMYCIN PFS [Suspect]
     Dosage: 90MG/M2X2; INTRAATERIALLY
     Route: 013
  3. THERAPY FOR OSTEOSARCOMA [Concomitant]

REACTIONS (1)
  - SYNOVIAL SARCOMA [None]
